FAERS Safety Report 11228668 (Version 1)
Quarter: 2015Q2

REPORT INFORMATION
  Report Type: Spontaneous
  Country: US (occurrence: US)
  Receive Date: 20150630
  Receipt Date: 20150630
  Transmission Date: 20150821
  Serious: Yes (Hospitalization)
  Sender: FDA-Public Use
  Company Number: US-TEVA-573546USA

PATIENT
  Age: 76 Year
  Sex: Female

DRUGS (1)
  1. HYDRALAZINE [Suspect]
     Active Substance: HYDRALAZINE HYDROCHLORIDE
     Indication: HYPERTENSION
     Dosage: 75MG DAILY
     Route: 065

REACTIONS (2)
  - Lupus-like syndrome [Unknown]
  - Acute febrile neutrophilic dermatosis [Unknown]
